FAERS Safety Report 7136596-9 (Version None)
Quarter: 2010Q4

REPORT INFORMATION
  Report Type: 
  Country: None (occurrence: None)
  Receive Date: 20101206
  Receipt Date: 20101130
  Transmission Date: 20110411
  Serious: Yes (Other)
  Sender: FDA-Public Use
  Company Number: US-BAYER-2010-000344

PATIENT
  Sex: Female

DRUGS (1)
  1. MIRENA [Suspect]
     Indication: MENSTRUAL CYCLE MANAGEMENT
     Dosage: 20 A?G, CONT
     Route: 015
     Dates: start: 20100801, end: 20101101

REACTIONS (4)
  - ABDOMINAL PAIN [None]
  - OVARIAN CYST [None]
  - POST PROCEDURAL COMPLICATION [None]
  - VAGINAL HAEMORRHAGE [None]
